FAERS Safety Report 10757236 (Version 1)
Quarter: 2015Q1

REPORT INFORMATION
  Report Type: Spontaneous
  Country: US (occurrence: US)
  Receive Date: 20150203
  Receipt Date: 20150203
  Transmission Date: 20150721
  Serious: Yes (Hospitalization, Other)
  Sender: FDA-Public Use
  Company Number: US-AUROBINDO-AUR-APL-2012-04817

PATIENT
  Age: 34 Year
  Sex: Male

DRUGS (2)
  1. ZOLPIDEM TARTRATE TABLETS 5 MG [Suspect]
     Active Substance: ZOLPIDEM TARTRATE
     Dosage: UNK
     Route: 065
  2. ZOLPIDEM TARTRATE TABLETS 5 MG [Suspect]
     Active Substance: ZOLPIDEM TARTRATE
     Indication: CIRCADIAN RHYTHM SLEEP DISORDER
     Dosage: 200 MG,DAILY,
     Route: 065

REACTIONS (7)
  - Drug withdrawal syndrome [Recovered/Resolved]
  - Anxiety [Recovered/Resolved]
  - Drug dependence [Recovered/Resolved]
  - Headache [Recovered/Resolved]
  - Generalised tonic-clonic seizure [Recovered/Resolved]
  - Feeling jittery [Recovered/Resolved]
  - Vision blurred [Recovered/Resolved]
